FAERS Safety Report 5717555-7 (Version None)
Quarter: 2008Q2

REPORT INFORMATION
  Report Type: 
  Country: None (occurrence: None)
  Receive Date: 20080425
  Receipt Date: 20080421
  Transmission Date: 20081010
  Serious: Yes (Other)
  Sender: FDA-Public Use
  Company Number: FR-JNJFOC-20080303591

PATIENT
  Sex: Male

DRUGS (12)
  1. RISPERDAL CONSTA [Suspect]
     Indication: CHILDHOOD PSYCHOSIS
     Route: 030
     Dates: start: 20071001
  2. TERCIAN [Suspect]
     Indication: ABNORMAL BEHAVIOUR
     Route: 048
  3. LEPTICUR [Suspect]
     Indication: DRUG USE FOR UNKNOWN INDICATION
     Route: 048
  4. IMOVANE [Suspect]
     Indication: DRUG USE FOR UNKNOWN INDICATION
     Route: 048
  5. LOXAPINE HCL [Concomitant]
     Route: 048
  6. LOXAPINE HCL [Concomitant]
     Route: 048
  7. LOXAPINE HCL [Concomitant]
     Route: 048
  8. LOXAPINE HCL [Concomitant]
     Indication: ABNORMAL BEHAVIOUR
     Route: 048
  9. TRANXENE [Concomitant]
     Route: 048
  10. TRANXENE [Concomitant]
     Route: 048
  11. TRANXENE [Concomitant]
     Indication: DRUG USE FOR UNKNOWN INDICATION
     Route: 048
  12. ATARAX [Concomitant]
     Indication: DRUG USE FOR UNKNOWN INDICATION
     Route: 048

REACTIONS (4)
  - BRADYCARDIA [None]
  - CARDIAC VENTRICULAR DISORDER [None]
  - ELECTROCARDIOGRAM ST SEGMENT ELEVATION [None]
  - NON-OBSTRUCTIVE CARDIOMYOPATHY [None]
